FAERS Safety Report 9606121 (Version 1)
Quarter: 2013Q4

REPORT INFORMATION
  Report Type: Spontaneous
  Country: US (occurrence: US)
  Receive Date: 20131008
  Receipt Date: 20131008
  Transmission Date: 20140711
  Serious: No
  Sender: FDA-Public Use
  Company Number: US-AMGEN-USASP2013043338

PATIENT
  Age: 73 Year
  Sex: Female

DRUGS (8)
  1. PROLIA [Suspect]
     Indication: OSTEOPOROSIS
     Dosage: UNK
     Dates: start: 201210
  2. VASOTEC                            /00574902/ [Concomitant]
  3. METHOTREXATE [Concomitant]
  4. PREDNISONE [Concomitant]
  5. VENTOLIN                           /00139501/ [Concomitant]
  6. FOLIC ACID [Concomitant]
  7. NORVASC [Concomitant]
  8. CALCIUM [Concomitant]

REACTIONS (9)
  - Rash erythematous [Not Recovered/Not Resolved]
  - Skin burning sensation [Unknown]
  - Skin exfoliation [Unknown]
  - Bronchitis [Recovered/Resolved]
  - Alopecia [Recovered/Resolved]
  - Dry mouth [Unknown]
  - Rash macular [Unknown]
  - Pain in extremity [Unknown]
  - Rash [Unknown]
